FAERS Safety Report 8504898-7 (Version None)
Quarter: 2012Q3

REPORT INFORMATION
  Report Type: 
  Country: None (occurrence: None)
  Receive Date: 20120712
  Receipt Date: 20120704
  Transmission Date: 20120928
  Serious: Yes (Other)
  Sender: FDA-Public Use
  Company Number: PHHY2012JP029103

PATIENT
  Age: 80 Year
  Sex: Male

DRUGS (11)
  1. EPLERENONE [Concomitant]
     Dosage: UNK
     Dates: start: 20090122
  2. EQUA [Concomitant]
     Dosage: UNK
     Dates: start: 20100419
  3. RIVASTIGMINE [Suspect]
     Dosage: 18 MG, DAILY
     Route: 062
     Dates: start: 20120217, end: 20120409
  4. RIVASTIGMINE [Suspect]
     Dosage: 9 MG, DAILY
     Route: 062
     Dates: start: 20120330, end: 20120409
  5. DIOVAN [Concomitant]
     Dosage: UNK
     Dates: start: 20090122
  6. ASPIRIN [Concomitant]
     Dosage: UNK
     Dates: start: 20090122
  7. OMEPRAZOLE [Concomitant]
     Dosage: UNK
     Dates: start: 20090122
  8. RIVASTIGMINE [Suspect]
     Dosage: 9 MG, DAILY
     Route: 062
     Dates: start: 20111209
  9. RIVASTIGMINE [Suspect]
     Dosage: 13.5 MG, DAILY
     Route: 062
     Dates: start: 20120120
  10. CALBLOCK [Concomitant]
     Dosage: UNK
     Dates: start: 20090122
  11. RIVASTIGMINE [Suspect]
     Indication: DEMENTIA ALZHEIMER'S TYPE
     Dosage: 4.5 MG, DAILY
     Route: 062
     Dates: start: 20111111

REACTIONS (2)
  - BLOOD CHOLINESTERASE DECREASED [None]
  - FRACTURE [None]
